FAERS Safety Report 6051367-2 (Version None)
Quarter: 2009Q1

REPORT INFORMATION
  Report Type: 
  Country: None (occurrence: None)
  Receive Date: 20090126
  Receipt Date: 20090126
  Transmission Date: 20090719
  Serious: Yes (Other)
  Sender: FDA-Public Use
  Company Number: US-PFIZER INC-2008150892

PATIENT
  Sex: Female
  Weight: 82.553 kg

DRUGS (12)
  1. CELEBREX [Suspect]
     Indication: ARTHRITIS
  2. IBUPROFEN [Suspect]
  3. FOSAMAX [Suspect]
     Indication: OSTEOPOROSIS
  4. CALCITONIN [Suspect]
     Indication: OSTEOPOROSIS
  5. PLAQUENIL [Concomitant]
  6. HYDROCHLOROTHIAZIDE [Concomitant]
  7. WELLBUTRIN XL [Concomitant]
  8. METFORMIN [Concomitant]
  9. TOPAMAX [Concomitant]
  10. ALLEGRA [Concomitant]
  11. ASPIRIN [Concomitant]
  12. MISOPROSTOL [Concomitant]

REACTIONS (3)
  - CARDIAC FLUTTER [None]
  - GASTRITIS [None]
  - SPINAL FUSION SURGERY [None]
